FAERS Safety Report 15365719 (Version 2)
Quarter: 2018Q4

REPORT INFORMATION
  Report Type: Report from Study
  Country: US (occurrence: US)
  Receive Date: 20180910
  Receipt Date: 20181003
  Transmission Date: 20190204
  Serious: No
  Sender: FDA-Public Use
  Company Number: PHEH2018US036758

PATIENT
  Age: 25 Year
  Sex: Female

DRUGS (2)
  1. COSENTYX [Suspect]
     Active Substance: SECUKINUMAB
     Indication: PSORIATIC ARTHROPATHY
     Dosage: UNK
     Route: 065
  2. COSENTYX [Suspect]
     Active Substance: SECUKINUMAB
     Indication: PSORIASIS

REACTIONS (8)
  - Pain [Unknown]
  - Psoriasis [Unknown]
  - Injection site discomfort [Unknown]
  - Arthralgia [Unknown]
  - Injection site pain [Unknown]
  - Skin fissures [Unknown]
  - Skin burning sensation [Unknown]
  - Drug ineffective [Unknown]
